FAERS Safety Report 11339393 (Version 1)
Quarter: 2015Q3

REPORT INFORMATION
  Report Type: Spontaneous
  Country: CH (occurrence: CH)
  Receive Date: 20150805
  Receipt Date: 20150805
  Transmission Date: 20151125
  Serious: Yes (Other)
  Sender: FDA-Public Use
  Company Number: CH-009507513-1507CHE013355

PATIENT
  Age: 38 Year
  Sex: Female

DRUGS (5)
  1. ELEVIT [Concomitant]
     Active Substance: FOLIC ACID\IRON\MINERALS\VITAMINS
  2. SEROPRAM [Suspect]
     Active Substance: CITALOPRAM HYDROBROMIDE
     Indication: PRODUCT USED FOR UNKNOWN INDICATION
     Dosage: 20 MG, QD
     Route: 048
     Dates: start: 2013
  3. REMERON [Suspect]
     Active Substance: MIRTAZAPINE
     Indication: SLEEP DISORDER
     Dosage: 15 MG, QD
     Route: 048
     Dates: start: 2013
  4. ZELLER REBALANCE [Suspect]
     Active Substance: ST. JOHN^S WORT
     Indication: SLEEP DISORDER
     Dosage: UNK
     Route: 048
     Dates: start: 2013
  5. TRYPTOPHAN [Suspect]
     Active Substance: TRYPTOPHAN
     Indication: SLEEP DISORDER
     Dosage: UNK
     Route: 048
     Dates: start: 2013

REACTIONS (2)
  - Abortion [Recovered/Resolved]
  - Exposure during pregnancy [Recovered/Resolved]

NARRATIVE: CASE EVENT DATE: 20131211
